FAERS Safety Report 17064678 (Version 2)
Quarter: 2019Q4

REPORT INFORMATION
  Report Type: Spontaneous
  Country: DE (occurrence: DE)
  Receive Date: 20191122
  Receipt Date: 20191220
  Transmission Date: 20200122
  Serious: No
  Sender: FDA-Public Use
  Company Number: DE-US-PROVELL PHARMACEUTICALS LLC-E2B_90072456

PATIENT
  Sex: Female

DRUGS (1)
  1. EUTHYROX NF [Suspect]
     Active Substance: LEVOTHYROXINE SODIUM
     Indication: PRODUCT USED FOR UNKNOWN INDICATION

REACTIONS (9)
  - Vitamin B12 deficiency [Unknown]
  - Oral discomfort [Unknown]
  - Lip swelling [Unknown]
  - Mucosal disorder [Unknown]
  - Dysgeusia [Unknown]
  - Gastric disorder [Unknown]
  - Lip erythema [Unknown]
  - Hypersensitivity [Unknown]
  - Nausea [Unknown]
